FAERS Safety Report 16886596 (Version 1)
Quarter: 2019Q4

REPORT INFORMATION
  Report Type: Spontaneous
  Country: US (occurrence: US)
  Receive Date: 20191004
  Receipt Date: 20191004
  Transmission Date: 20200122
  Serious: No
  Sender: FDA-Public Use
  Company Number: US-SA-2019SA273314

PATIENT
  Age: 65 Year
  Sex: Female

DRUGS (1)
  1. LANTUS SOLOSTAR [Suspect]
     Active Substance: INSULIN GLARGINE
     Indication: TYPE 2 DIABETES MELLITUS
     Dosage: 60 UNITS OF INSULIN IN THE MORNING AND 38 UNITS AT NIGHT, BID
     Route: 065

REACTIONS (4)
  - Inappropriate schedule of product administration [Unknown]
  - Multiple use of single-use product [Unknown]
  - Device operational issue [Unknown]
  - Product dose omission [Unknown]
